FAERS Safety Report 7650807-2 (Version None)
Quarter: 2011Q3

REPORT INFORMATION
  Report Type: 
  Country: None (occurrence: None)
  Receive Date: 20110802
  Receipt Date: 20110722
  Transmission Date: 20111222
  Serious: Yes (Hospitalization, Disabling, Other)
  Sender: FDA-Public Use
  Company Number: US-MERCK-1104USA03092

PATIENT
  Age: 68 Year
  Sex: Female

DRUGS (5)
  1. FOSAMAX [Suspect]
     Indication: OSTEOPOROSIS
     Route: 048
     Dates: start: 20000101, end: 20100101
  2. HORMONES (UNSPECIFIED) [Concomitant]
     Route: 065
     Dates: start: 19910101
  3. LEVOTHYROXINE SODIUM [Concomitant]
     Indication: HYPERTHYROIDISM
     Route: 065
     Dates: start: 19910101
  4. FOSAMAX [Suspect]
     Indication: OSTEOPENIA
     Route: 048
     Dates: start: 20000101, end: 20100101
  5. FOSAMAX PLUS D [Suspect]
     Indication: OSTEOPOROSIS
     Route: 065
     Dates: start: 20000101, end: 20100101

REACTIONS (5)
  - BREAST CANCER [None]
  - OSTEOPOROSIS [None]
  - BONE DENSITY DECREASED [None]
  - FEMUR FRACTURE [None]
  - STRESS FRACTURE [None]
